FAERS Safety Report 4665090-X (Version None)
Quarter: 2005Q2

REPORT INFORMATION
  Report Type: 
  Country: None (occurrence: None)
  Receive Date: 20050517
  Receipt Date: 20050304
  Transmission Date: 20051028
  Serious: Yes (Other)
  Sender: FDA-Public Use
  Company Number: S05-USA-01204-01

PATIENT
  Age: 84 Year
  Sex: Female

DRUGS (9)
  1. NAMENDA [Suspect]
     Indication: DEMENTIA ALZHEIMER'S TYPE
     Dosage: 5 MG BID PO; 5 MG QD PO; 5 MG QD PO
     Route: 048
     Dates: start: 20020101
  2. . [Concomitant]
  3. . [Concomitant]
  4. REMINYL [Concomitant]
  5. ZYPREXA [Concomitant]
  6. LESCOL [Concomitant]
  7. ASPIRIN [Concomitant]
  8. MULTI-VITAMIN [Concomitant]
  9. ANTIBIOTIC (NOS) [Concomitant]

REACTIONS (3)
  - CONVULSION [None]
  - DYSPHAGIA [None]
  - SOMNOLENCE [None]
